FAERS Safety Report 15839136 (Version 1)
Quarter: 2019Q1

REPORT INFORMATION
  Report Type: Spontaneous
  Country: US (occurrence: US)
  Receive Date: 20190117
  Receipt Date: 20190117
  Transmission Date: 20190417
  Serious: No
  Sender: FDA-Public Use
  Company Number: US-JIANGSU HENGRUI MEDICINE CO., LTD.-2061370

PATIENT
  Age: 12 Year
  Sex: Male

DRUGS (14)
  1. CYTARABINE. [Concomitant]
     Active Substance: CYTARABINE
  2. DEXAMETHASONE. [Concomitant]
     Active Substance: DEXAMETHASONE
  3. DECADRON [Concomitant]
     Active Substance: DEXAMETHASONE
  4. METHOTREXATE. [Concomitant]
     Active Substance: METHOTREXATE
  5. IMATINIB MESYLATE. [Concomitant]
     Active Substance: IMATINIB MESYLATE
  6. THIOGUANINE [Concomitant]
     Active Substance: THIOGUANINE
  7. CARMOFUR [Concomitant]
     Active Substance: CARMOFUR
  8. VINCRISTINE SULFATE. [Concomitant]
     Active Substance: VINCRISTINE SULFATE
  9. PEGASPARAGINASE [Concomitant]
     Active Substance: PEGASPARGASE
  10. MERCAPTOPURINE. [Concomitant]
     Active Substance: MERCAPTOPURINE
  11. DAUNORUBICIN HYDROCHLORIDE. [Concomitant]
     Active Substance: DAUNORUBICIN HYDROCHLORIDE
  12. CYCLOPHOSPHAMIDE FOR INJECTION USP, 500 MG, 1 G AND 2 G PER SINGLE-DOS [Suspect]
     Active Substance: CYCLOPHOSPHAMIDE
     Indication: CHRONIC LYMPHOCYTIC LEUKAEMIA
  13. DOXORUBICIN HYDROCHLORIDE. [Concomitant]
     Active Substance: DOXORUBICIN HYDROCHLORIDE
  14. ASPARAGINASE [Concomitant]
     Active Substance: ASPARAGINASE

REACTIONS (5)
  - Fatigue [None]
  - Acute lymphocytic leukaemia recurrent [None]
  - Nausea [None]
  - Headache [None]
  - Vomiting [None]
